FAERS Safety Report 10163330 (Version 2)
Quarter: 2014Q4

REPORT INFORMATION
  Report Type: Spontaneous
  Country: DE (occurrence: DE)
  Receive Date: 20140509
  Receipt Date: 20141226
  Transmission Date: 20150528
  Serious: Yes (Hospitalization, Other)
  Sender: FDA-Public Use
  Company Number: DE-BRISTOL-MYERS SQUIBB COMPANY-20695649

PATIENT
  Age: 48 Year
  Sex: Male

DRUGS (6)
  1. MAGNESIUM [Concomitant]
     Active Substance: MAGNESIUM
  2. IBUPROFEN. [Concomitant]
     Active Substance: IBUPROFEN
  3. COUMADIN [Suspect]
     Active Substance: WARFARIN SODIUM
     Indication: PRODUCT USED FOR UNKNOWN INDICATION
     Dosage: DOSE: 2 X 5 MG EVERY NIGHT  2.5 TABLETS ON SUNDAYS
     Route: 065
  4. PANTOPRAZOLE [Concomitant]
     Active Substance: PANTOPRAZOLE SODIUM
  5. TILIDINE [Concomitant]
     Active Substance: TILIDINE
     Dosage: 200 MG, TID
  6. METAMIZOLE [Concomitant]
     Active Substance: METAMIZOLE

REACTIONS (4)
  - Visual impairment [Not Recovered/Not Resolved]
  - Haemorrhage [Unknown]
  - Back pain [Unknown]
  - Prothrombin time shortened [Unknown]
